FAERS Safety Report 11718191 (Version 1)
Quarter: 2015Q4

REPORT INFORMATION
  Report Type: Spontaneous
  Country: FR (occurrence: FR)
  Receive Date: 20151110
  Receipt Date: 20151110
  Transmission Date: 20160304
  Serious: Yes (Death)
  Sender: FDA-Public Use
  Company Number: FR-JNJFOC-20151106363

PATIENT
  Age: 82 Year
  Sex: Male

DRUGS (13)
  1. JOSAMYCIN [Suspect]
     Active Substance: JOSAMYCIN
     Indication: LUNG INFECTION
     Route: 048
     Dates: start: 20150417, end: 20150423
  2. FLUINDIONE [Concomitant]
     Active Substance: FLUINDIONE
     Dosage: STRENGTH-20 MG
     Route: 048
     Dates: end: 20150425
  3. RISPERDAL [Suspect]
     Active Substance: RISPERIDONE
     Indication: PRODUCT USED FOR UNKNOWN INDICATION
     Dosage: 0.5 DOSES AS NEEDED
     Route: 048
     Dates: start: 201503, end: 20150423
  4. KARDEGIC [Concomitant]
     Active Substance: ASPIRIN LYSINE
     Route: 048
     Dates: end: 20150424
  5. STILNOX [Concomitant]
     Active Substance: ZOLPIDEM TARTRATE
     Route: 048
     Dates: end: 20150423
  6. DISCOTRINE [Concomitant]
     Active Substance: NITROGLYCERIN
     Route: 062
     Dates: end: 20150426
  7. PARACETAMOL [Concomitant]
     Active Substance: ACETAMINOPHEN
     Dosage: MAXIMUM 6 TIMES PER DAY
     Route: 065
     Dates: start: 20150423, end: 20150425
  8. PERMIXON [Concomitant]
     Active Substance: SAW PALMETTO
     Route: 048
     Dates: end: 20150424
  9. DEROXAT [Suspect]
     Active Substance: PAROXETINE HYDROCHLORIDE
     Indication: PRODUCT USED FOR UNKNOWN INDICATION
     Route: 048
     Dates: start: 201503, end: 20150423
  10. SERESTA [Suspect]
     Active Substance: OXAZEPAM
     Indication: PRODUCT USED FOR UNKNOWN INDICATION
     Route: 048
     Dates: start: 201503, end: 20150423
  11. INNOVAIR [Concomitant]
     Active Substance: BECLOMETHASONE DIPROPIONATE\FORMOTEROL
     Dosage: 100 MCG/6 MCG PER DOSE
     Route: 055
     Dates: end: 20150423
  12. ROCEPHINE [Suspect]
     Active Substance: CEFTRIAXONE SODIUM
     Indication: LUNG INFECTION
     Route: 042
     Dates: start: 20150410, end: 20150416
  13. LEVOTHYROX [Concomitant]
     Active Substance: LEVOTHYROXINE
     Route: 048
     Dates: end: 20150425

REACTIONS (1)
  - Acute kidney injury [Fatal]

NARRATIVE: CASE EVENT DATE: 20150423
